FAERS Safety Report 5887903-6 (Version None)
Quarter: 2008Q3

REPORT INFORMATION
  Report Type: 
  Country: None (occurrence: None)
  Receive Date: 20080918
  Receipt Date: 20080915
  Transmission Date: 20090109
  Serious: Yes (Other)
  Sender: FDA-Public Use
  Company Number: A0747473A

PATIENT
  Age: 47 Year
  Sex: Female

DRUGS (2)
  1. RELAFEN [Suspect]
     Dosage: 1TAB SINGLE DOSE
     Route: 048
     Dates: start: 20010408, end: 20010408
  2. LEVOTHYROXINE SODIUM [Concomitant]

REACTIONS (8)
  - BURNING SENSATION [None]
  - DISABILITY [None]
  - HYPERSENSITIVITY [None]
  - JOINT SWELLING [None]
  - OEDEMA PERIPHERAL [None]
  - PARAESTHESIA [None]
  - PYREXIA [None]
  - RHEUMATOID ARTHRITIS [None]
